FAERS Safety Report 6619857-9 (Version None)
Quarter: 2010Q1

REPORT INFORMATION
  Report Type: 
  Country: None (occurrence: None)
  Receive Date: 20100223
  Receipt Date: 20100120
  Transmission Date: 20100710
  Serious: No
  Sender: FDA-Public Use
  Company Number: 005571

PATIENT
  Sex: Female

DRUGS (3)
  1. CIMZIA [Suspect]
     Indication: CROHN'S DISEASE
     Dosage: 400 MG ONCE MONTHLY SUBCUTANEOUS
     Route: 058
     Dates: start: 20091101
  2. PREDNISONE TAB [Concomitant]
  3. CANASA [Concomitant]

REACTIONS (1)
  - NO THERAPEUTIC RESPONSE [None]
